FAERS Safety Report 16297131 (Version 1)
Quarter: 2019Q2

REPORT INFORMATION
  Report Type: Report from Study
  Country: US (occurrence: US)
  Receive Date: 20190510
  Receipt Date: 20190510
  Transmission Date: 20190711
  Serious: No
  Sender: FDA-Public Use
  Company Number: PHEH2019US019763

PATIENT
  Sex: Female
  Weight: 74.83 kg

DRUGS (2)
  1. SILDENAFIL CITRATE. [Concomitant]
     Active Substance: SILDENAFIL CITRATE
     Indication: PRODUCT USED FOR UNKNOWN INDICATION
     Route: 065
  2. TREPROSTINIL. [Suspect]
     Active Substance: TREPROSTINIL
     Indication: PULMONARY ARTERIAL HYPERTENSION
     Dosage: 64 UG/KG/MIN, UNK
     Route: 042
     Dates: start: 20190418

REACTIONS (4)
  - Diarrhoea [Unknown]
  - Headache [Unknown]
  - Abdominal distension [Unknown]
  - Dizziness [Unknown]
